FAERS Safety Report 6274309-3 (Version None)
Quarter: 2009Q3

REPORT INFORMATION
  Report Type: 
  Country: None (occurrence: None)
  Receive Date: 20090720
  Receipt Date: 20090714
  Transmission Date: 20100115
  Serious: Yes (Hospitalization, Other)
  Sender: FDA-Public Use
  Company Number: GR-ABBOTT-09P-066-0580986-00

PATIENT
  Age: 74 Year
  Sex: Male
  Weight: 95 kg

DRUGS (9)
  1. HUMIRA [Suspect]
     Indication: RHEUMATOID ARTHRITIS
     Route: 058
     Dates: start: 20090424
  2. SINTROM [Suspect]
     Indication: ATRIAL FIBRILLATION
     Dosage: 0.75 X 1
     Route: 048
     Dates: start: 20070101
  3. MEDROL [Concomitant]
     Indication: RHEUMATOID ARTHRITIS
     Route: 048
     Dates: start: 20090604
  4. SINTROM [Concomitant]
     Route: 048
     Dates: start: 20070101
  5. TRIATEC [Concomitant]
     Indication: HYPERTENSION
     Route: 048
     Dates: start: 19970101
  6. ANGORON [Concomitant]
     Indication: ATRIAL FIBRILLATION
     Route: 048
     Dates: start: 20081201, end: 20090107
  7. GLUCOPHAGE [Concomitant]
     Indication: DIABETES MELLITUS
     Route: 048
     Dates: start: 19980101
  8. DIAMICRON [Concomitant]
     Indication: DIABETES MELLITUS
     Route: 048
     Dates: start: 19980101
  9. XATRAL [Concomitant]
     Indication: BENIGN PROSTATIC HYPERPLASIA
     Route: 048
     Dates: start: 20080101

REACTIONS (3)
  - ANAEMIA [None]
  - ASTHENIA [None]
  - SUBDURAL HYGROMA [None]
